FAERS Safety Report 4545009-2 (Version None)
Quarter: 2005Q1

REPORT INFORMATION
  Report Type: 
  Country: None (occurrence: None)
  Receive Date: 20050105
  Receipt Date: 20041203
  Transmission Date: 20050727
  Serious: Yes (Other)
  Sender: FDA-Public Use
  Company Number: JP-GLAXOSMITHKLINE-B0359328A

PATIENT
  Age: 50 Year
  Sex: Male

DRUGS (3)
  1. ZIAGEN [Suspect]
     Route: 048
     Dates: start: 20041110, end: 20041207
  2. EPIVIR [Suspect]
     Route: 048
     Dates: start: 20041110, end: 20041207
  3. STOCRIN [Suspect]
     Route: 048
     Dates: start: 20041110, end: 20041205

REACTIONS (9)
  - ALANINE AMINOTRANSFERASE INCREASED [None]
  - ASPARTATE AMINOTRANSFERASE INCREASED [None]
  - BLOOD ALKALINE PHOSPHATASE INCREASED [None]
  - BLOOD LACTATE DEHYDROGENASE INCREASED [None]
  - GAMMA-GLUTAMYLTRANSFERASE INCREASED [None]
  - HEPATIC FUNCTION ABNORMAL [None]
  - LIVER FUNCTION TEST ABNORMAL [None]
  - PYREXIA [None]
  - RASH [None]
